FAERS Safety Report 10752022 (Version 1)
Quarter: 2015Q1

REPORT INFORMATION
  Report Type: Spontaneous
  Country: IT (occurrence: IT)
  Receive Date: 20150130
  Receipt Date: 20150130
  Transmission Date: 20150721
  Serious: Yes (Other)
  Sender: FDA-Public Use
  Company Number: IT-PFIZER INC-2015035984

PATIENT
  Age: 31 Year
  Sex: Male

DRUGS (7)
  1. TARGIN [Suspect]
     Active Substance: NALOXONE HYDROCHLORIDE\OXYCODONE HYDROCHLORIDE
     Dosage: 11 DF, TOTAL
     Route: 048
     Dates: start: 20150104, end: 20150104
  2. PREFOLIC [Suspect]
     Active Substance: LEUCOVORIN CALCIUM
     Dosage: 5 DF, TOTAL
     Route: 048
     Dates: start: 20150104, end: 20150104
  3. ATARAX [Suspect]
     Active Substance: HYDROXYZINE\HYDROXYZINE HYDROCHLORIDE
     Dosage: 5 DF, TOTAL
     Route: 048
     Dates: start: 20150104, end: 20150104
  4. DEPALGOS [Suspect]
     Active Substance: ACETAMINOPHEN\OXYCODONE HYDROCHLORIDE
     Dosage: 4 DF, TOTAL
     Route: 048
     Dates: start: 20150104, end: 20150104
  5. DELORAZEPAM [Suspect]
     Active Substance: DELORAZEPAM
     Dosage: 4 DF, TOTAL
     Route: 048
     Dates: start: 20150104, end: 20150104
  6. HALCION [Suspect]
     Active Substance: TRIAZOLAM
     Dosage: 7 DF, TOTAL
     Route: 048
     Dates: start: 20150104, end: 20150104
  7. FERRO-GRAD [Suspect]
     Active Substance: FERROUS SULFATE\FERROUS SULFATE, DRIED
     Dosage: 1 DF, TOTAL
     Route: 048
     Dates: start: 20150104, end: 20150104

REACTIONS (4)
  - Intentional self-injury [Unknown]
  - Agitation [Unknown]
  - Confusional state [Unknown]
  - Drug abuse [Unknown]

NARRATIVE: CASE EVENT DATE: 20150104
